FAERS Safety Report 12796608 (Version 5)
Quarter: 2016Q4

REPORT INFORMATION
  Report Type: Spontaneous
  Country: JP (occurrence: JP)
  Receive Date: 20160929
  Receipt Date: 20161111
  Transmission Date: 20170207
  Serious: Yes (Other)
  Sender: FDA-Public Use
  Company Number: JP-PFIZER INC-2016452088

PATIENT
  Sex: Male
  Weight: 49.5 kg

DRUGS (1)
  1. FLUCONAZOLE. [Suspect]
     Active Substance: FLUCONAZOLE
     Indication: ANTIFUNGAL PROPHYLAXIS
     Dosage: UNK
     Route: 048
     Dates: start: 20140901, end: 20151013

REACTIONS (4)
  - Pneumonia [Unknown]
  - Diabetes mellitus [Unknown]
  - Electrocardiogram QT prolonged [Unknown]
  - Renal cancer [Unknown]

NARRATIVE: CASE EVENT DATE: 201510
